FAERS Safety Report 10010050 (Version 1)
Quarter: 2014Q1

REPORT INFORMATION
  Report Type: Spontaneous
  Country: US (occurrence: US)
  Receive Date: 20140312
  Receipt Date: 20140312
  Transmission Date: 20141002
  Serious: No
  Sender: FDA-Public Use
  Company Number: US-INCYTE CORPORATION-2013IN000943

PATIENT
  Sex: Female

DRUGS (1)
  1. JAKAFI [Suspect]
     Indication: MYELOFIBROSIS
     Dosage: 15 MG, QD
     Route: 048
     Dates: start: 20120521

REACTIONS (5)
  - Rash [Unknown]
  - Skin lesion [Unknown]
  - Splenomegaly [Unknown]
  - Weight increased [Unknown]
  - White blood cell count decreased [None]
